FAERS Safety Report 14010263 (Version 1)
Quarter: 2017Q3

REPORT INFORMATION
  Report Type: Spontaneous
  Country: US (occurrence: US)
  Receive Date: 20170926
  Receipt Date: 20170926
  Transmission Date: 20171128
  Serious: No
  Sender: FDA-Public Use
  Company Number: US-SHIRE-US201718881

PATIENT
  Sex: Female

DRUGS (1)
  1. CUVITRU [Suspect]
     Active Substance: HUMAN IMMUNOGLOBULIN G
     Indication: IMMUNODEFICIENCY COMMON VARIABLE
     Dosage: UNK, 1X/WEEK, 3 DOSES
     Route: 058
     Dates: start: 201707, end: 201707

REACTIONS (4)
  - Infusion site erythema [Unknown]
  - Infusion site swelling [Unknown]
  - Infusion site pain [Unknown]
  - Throat tightness [Unknown]

NARRATIVE: CASE EVENT DATE: 201707
